FAERS Safety Report 10519275 (Version 2)
Quarter: 2014Q4

REPORT INFORMATION
  Report Type: Report from Study
  Country: US (occurrence: US)
  Receive Date: 20141015
  Receipt Date: 20141022
  Transmission Date: 20150528
  Serious: Yes (Hospitalization, Other)
  Sender: FDA-Public Use
  Company Number: US-ABBVIE-14K-163-1294080-00

PATIENT
  Age: 47 Year
  Sex: Male

DRUGS (6)
  1. HUMIRA [Suspect]
     Active Substance: ADALIMUMAB
     Indication: CROHN^S DISEASE
     Route: 065
     Dates: start: 2009, end: 2012
  2. HUMIRA [Suspect]
     Active Substance: ADALIMUMAB
     Route: 065
     Dates: start: 2013
  3. VITAMIN D [Concomitant]
     Active Substance: CHOLECALCIFEROL
     Indication: DEPRESSION
  4. GLIPIZIDE. [Concomitant]
     Active Substance: GLIPIZIDE
     Indication: DIABETES MELLITUS
  5. METFORMIN [Concomitant]
     Active Substance: METFORMIN HYDROCHLORIDE
     Indication: DIABETES MELLITUS
  6. LOVASTATIN. [Concomitant]
     Active Substance: LOVASTATIN
     Indication: BLOOD CHOLESTEROL INCREASED

REACTIONS (11)
  - Injection site bruising [Not Recovered/Not Resolved]
  - Device occlusion [Recovered/Resolved]
  - Disturbance in attention [Recovered/Resolved]
  - Injection site bruising [Recovered/Resolved]
  - Coronary artery occlusion [Recovered/Resolved]
  - Myocardial infarction [Unknown]
  - Coronary artery occlusion [Recovered/Resolved]
  - Feeling drunk [Recovered/Resolved]
  - Myocardial infarction [Recovered/Resolved]
  - Inappropriate schedule of drug administration [Unknown]
  - Crohn^s disease [Unknown]

NARRATIVE: CASE EVENT DATE: 201104
